FAERS Safety Report 4980016-7 (Version None)
Quarter: 2006Q2

REPORT INFORMATION
  Report Type: 
  Country: None (occurrence: None)
  Receive Date: 20060421
  Receipt Date: 20050609
  Transmission Date: 20061013
  Serious: Yes (Hospitalization, Disabling)
  Sender: FDA-Public Use
  Company Number: US-MERCK-0506USA01572

PATIENT
  Age: 50 Year
  Sex: Female
  Weight: 90 kg

DRUGS (4)
  1. VIOXX [Suspect]
     Indication: DYSMENORRHOEA
     Route: 048
     Dates: start: 20010501, end: 20010601
  2. VIOXX [Suspect]
     Route: 048
     Dates: start: 20020601, end: 20020901
  3. VIOXX [Suspect]
     Indication: ARTHRALGIA
     Route: 048
     Dates: start: 20010501, end: 20010601
  4. VIOXX [Suspect]
     Route: 048
     Dates: start: 20020601, end: 20020901

REACTIONS (77)
  - ABDOMINAL ADHESIONS [None]
  - ABDOMINAL PAIN [None]
  - ABDOMINAL PAIN LOWER [None]
  - ADRENAL INSUFFICIENCY [None]
  - ADVERSE EVENT [None]
  - AKINESIA [None]
  - AMNESIA [None]
  - ANTINUCLEAR ANTIBODY POSITIVE [None]
  - ARTERITIS CORONARY [None]
  - ARTHROPATHY [None]
  - ATRIAL FLUTTER [None]
  - ATRIAL TACHYCARDIA [None]
  - CARDIAC DISORDER [None]
  - CARDIOMEGALY [None]
  - CARPAL TUNNEL SYNDROME [None]
  - CELLULITIS [None]
  - CEREBROVASCULAR ACCIDENT [None]
  - CHEST PAIN [None]
  - CLOSED HEAD INJURY [None]
  - CONCUSSION [None]
  - CORONARY ARTERY DISEASE [None]
  - DEEP VEIN THROMBOSIS [None]
  - DEHYDRATION [None]
  - DEPRESSED LEVEL OF CONSCIOUSNESS [None]
  - DIVERTICULITIS [None]
  - DRUG DEPENDENCE [None]
  - DRUG HYPERSENSITIVITY [None]
  - DYSARTHRIA [None]
  - ELECTROCARDIOGRAM PR SHORTENED [None]
  - ELECTROCARDIOGRAM T WAVE ABNORMAL [None]
  - EXTRAPYRAMIDAL DISORDER [None]
  - FALL [None]
  - FIBROMYALGIA [None]
  - GASTRITIS [None]
  - GASTROINTESTINAL DISORDER [None]
  - GASTROOESOPHAGEAL REFLUX DISEASE [None]
  - GLOBAL AMNESIA [None]
  - HAEMATEMESIS [None]
  - HEADACHE [None]
  - HEMIPARESIS [None]
  - HEPATIC STEATOSIS [None]
  - HYPERCOAGULATION [None]
  - HYPERTENSION [None]
  - IMPAIRED GASTRIC EMPTYING [None]
  - INJURY [None]
  - LUNG NEOPLASM [None]
  - MENTAL DISORDER [None]
  - MIGRAINE [None]
  - MIXED CONNECTIVE TISSUE DISEASE [None]
  - MOOD SWINGS [None]
  - MUSCULOSKELETAL DISORDER [None]
  - MYOCARDIAL INFARCTION [None]
  - MYOCARDITIS [None]
  - MYOCLONUS [None]
  - NAUSEA [None]
  - OESOPHAGEAL DISORDER [None]
  - OSTEOARTHRITIS [None]
  - OSTEONECROSIS [None]
  - OSTEOPOROSIS [None]
  - PAIN [None]
  - PAIN IN EXTREMITY [None]
  - PAIN MANAGEMENT [None]
  - PERICARDITIS [None]
  - PHLEBITIS [None]
  - PULMONARY EMBOLISM [None]
  - PYREXIA [None]
  - RECTAL HAEMORRHAGE [None]
  - REFLUX GASTRITIS [None]
  - SECONDARY HYPOTHYROIDISM [None]
  - SYSTEMIC LUPUS ERYTHEMATOSUS [None]
  - TACHYCARDIA [None]
  - URINARY TRACT INFECTION [None]
  - UTERINE DISORDER [None]
  - VASCULITIS [None]
  - VENTRICULAR TACHYCARDIA [None]
  - VERTIGO [None]
  - VOMITING [None]
